FAERS Safety Report 24942377 (Version 11)
Quarter: 2025Q4

REPORT INFORMATION
  Report Type: Report from Study
  Country: EU (occurrence: EU)
  Receive Date: 20250207
  Receipt Date: 20251128
  Transmission Date: 20260117
  Serious: Yes (Hospitalization, Other)
  Sender: PFIZER
  Company Number: EU-PFM-2025-00294

PATIENT
  Age: 64 Year
  Sex: Female

DRUGS (7)
  1. ENCORAFENIB [Suspect]
     Active Substance: ENCORAFENIB
     Indication: Malignant melanoma
     Dosage: 450 MG, QD (1/DAY)
     Route: 048
     Dates: start: 20231012
  2. ENCORAFENIB [Suspect]
     Active Substance: ENCORAFENIB
     Dosage: 375 MG, QD (1/DAY)
     Route: 048
     Dates: start: 20231104
  3. ENCORAFENIB [Suspect]
     Active Substance: ENCORAFENIB
     Dosage: 450 MG, QD (1/DAY)
     Route: 048
     Dates: start: 20231214, end: 20250319
  4. BINIMETINIB [Suspect]
     Active Substance: BINIMETINIB
     Indication: Malignant melanoma
     Dosage: 45 MG, BID (2/DAY)
     Route: 048
     Dates: start: 20231012
  5. BINIMETINIB [Suspect]
     Active Substance: BINIMETINIB
     Dosage: 30 MG, QD (1/DAY)
     Route: 048
     Dates: start: 20231104
  6. BINIMETINIB [Suspect]
     Active Substance: BINIMETINIB
     Dosage: 45 MG, BID (2/DAY)
     Route: 048
     Dates: start: 20231214, end: 20250319
  7. TRI NORMIN [Concomitant]
     Dosage: UNK
     Route: 065

REACTIONS (3)
  - Colitis ischaemic [Not Recovered/Not Resolved]
  - Anaemia [Not Recovered/Not Resolved]
  - Hiatus hernia [Not Recovered/Not Resolved]

NARRATIVE: CASE EVENT DATE: 20250107
